FAERS Safety Report 21172120 (Version 2)
Quarter: 2022Q3

REPORT INFORMATION
  Report Type: Report from Study
  Country: BR (occurrence: BR)
  Receive Date: 20220804
  Receipt Date: 20220818
  Transmission Date: 20221026
  Serious: Yes (Hospitalization)
  Sender: FDA-Public Use
  Company Number: BR-JNJFOC-20220760387

PATIENT
  Sex: Male
  Weight: 61 kg

DRUGS (1)
  1. ERDAFITINIB [Suspect]
     Active Substance: ERDAFITINIB
     Indication: Transitional cell carcinoma
     Dosage: MEDICATION KIT NUMBER 187953
     Route: 048
     Dates: start: 20210211, end: 20220724

REACTIONS (1)
  - Gastrointestinal obstruction [Recovered/Resolved]

NARRATIVE: CASE EVENT DATE: 20220725
